FAERS Safety Report 8803504 (Version 1)
Quarter: 2012Q4

REPORT INFORMATION
  Report Type: 
  Country: US (occurrence: US)
  Receive Date: 20120924
  Receipt Date: 20120924
  Transmission Date: 20130627
  Serious: No
  Sender: FDA-Public Use
  Company Number: US-PFIZER INC-2012234010

PATIENT
  Age: 21 Year
  Sex: Female
  Weight: 86.17 kg

DRUGS (2)
  1. CHANTIX [Suspect]
     Indication: SMOKING CESSATION THERAPY
     Dosage: 0.5 mg, Daily
     Dates: start: 201208
  2. CHANTIX [Suspect]
     Dosage: 1 mg, 2x/day
     Dates: start: 201208, end: 2012

REACTIONS (1)
  - Nausea [Recovered/Resolved]
